FAERS Safety Report 25213025 (Version 1)
Quarter: 2025Q2

REPORT INFORMATION
  Report Type: Spontaneous
  Country: US (occurrence: US)
  Receive Date: 20250418
  Receipt Date: 20250418
  Transmission Date: 20250717
  Serious: Yes (Hospitalization, Other)
  Sender: NOVARTIS
  Company Number: US-002147023-NVSC2025US063180

PATIENT
  Age: 26 Year
  Sex: Female

DRUGS (3)
  1. OCTREOTIDE [Suspect]
     Active Substance: OCTREOTIDE
     Indication: Chylothorax
     Route: 065
  2. OCTREOTIDE [Suspect]
     Active Substance: OCTREOTIDE
     Indication: Pericardial disease
  3. OCTREOTIDE [Suspect]
     Active Substance: OCTREOTIDE

REACTIONS (3)
  - Chylothorax [Recovering/Resolving]
  - Pericardial effusion [Recovered/Resolved]
  - Off label use [Unknown]
